FAERS Safety Report 4941482-6 (Version None)
Quarter: 2006Q1

REPORT INFORMATION
  Report Type: 
  Country: None (occurrence: None)
  Receive Date: 20060310
  Receipt Date: 20060109
  Transmission Date: 20060701
  Serious: No
  Sender: FDA-Public Use
  Company Number: 06-001

PATIENT
  Age: 66 Year
  Sex: Female
  Weight: 60 kg

DRUGS (8)
  1. PYRIDOSTIGMINE BROMIDE (PYRI) [Suspect]
     Indication: PREGNANCY
     Dosage: 4-5
     Dates: start: 20051104
  2. FOLIC ACID [Suspect]
  3. RANITIDINE HYDROCHLORIDE [Suspect]
     Indication: GASTRIC DISORDER
  4. LUNESTA [Suspect]
     Indication: SOMNOLENCE
  5. ENBREL [Suspect]
     Indication: RHEUMATOID ARTHRITIS
     Dates: start: 19980501
  6. METHOTREXATE [Suspect]
     Indication: RHEUMATOID ARTHRITIS
     Dates: start: 19940101
  7. TRILISATE (AMIDE) [Suspect]
     Indication: RHEUMATOID ARTHRITIS
  8. CELEBREX [Suspect]
     Indication: PAIN

REACTIONS (23)
  - ABDOMINAL DISCOMFORT [None]
  - ANOREXIA [None]
  - ANXIETY [None]
  - ASTHENOPIA [None]
  - CHILLS [None]
  - CONDITION AGGRAVATED [None]
  - DECREASED APPETITE [None]
  - DIZZINESS POSTURAL [None]
  - EAR CONGESTION [None]
  - FLUSHING [None]
  - HEADACHE [None]
  - HOT FLUSH [None]
  - HYPERMETABOLISM [None]
  - HYPERSENSITIVITY [None]
  - INCREASED APPETITE [None]
  - MUSCULOSKELETAL DISCOMFORT [None]
  - NERVOUSNESS [None]
  - OPTIC NERVE DISORDER [None]
  - PARAESTHESIA [None]
  - PRESSURE OF SPEECH [None]
  - PSYCHOMOTOR HYPERACTIVITY [None]
  - TIC [None]
  - URTICARIA [None]
